FAERS Safety Report 15710005 (Version 1)
Quarter: 2018Q4

REPORT INFORMATION
  Report Type: Spontaneous
  Country: PL (occurrence: PL)
  Receive Date: 20181211
  Receipt Date: 20181211
  Transmission Date: 20190205
  Serious: Yes (Other)
  Sender: FDA-Public Use
  Company Number: PHHY2018PL174333

PATIENT
  Age: 4 Year
  Sex: Female

DRUGS (2)
  1. AZATHIOPRINE. [Concomitant]
     Active Substance: AZATHIOPRINE
     Indication: OPSOCLONUS MYOCLONUS
     Dosage: 100 MG, UNK
     Route: 065
  2. METHYLPREDNISOLONE. [Suspect]
     Active Substance: METHYLPREDNISOLONE
     Indication: OPSOCLONUS MYOCLONUS
     Dosage: 6X 500 MG, UNK
     Route: 042

REACTIONS (4)
  - Hepatitis [Unknown]
  - Drug dependence [Unknown]
  - Weight increased [Unknown]
  - Product use in unapproved indication [Unknown]
